FAERS Safety Report 7473890-6 (Version None)
Quarter: 2011Q2

REPORT INFORMATION
  Report Type: 
  Country: None (occurrence: None)
  Receive Date: 20110511
  Receipt Date: 20110427
  Transmission Date: 20111010
  Serious: Yes (Death, Hospitalization)
  Sender: FDA-Public Use
  Company Number: US-CELGENEUS-163-21880-11030916

PATIENT
  Sex: Male

DRUGS (7)
  1. ASPIRIN [Concomitant]
     Route: 048
  2. VALTREX [Concomitant]
     Route: 065
  3. DEXAMETHASONE [Concomitant]
     Indication: MULTIPLE MYELOMA
     Route: 065
  4. REVLIMID [Suspect]
     Dosage: 25 MILLIGRAM
     Route: 048
     Dates: start: 20090201
  5. REVLIMID [Suspect]
     Dosage: 10 MILLIGRAM
     Route: 048
     Dates: start: 20091116, end: 20110101
  6. FINASTERIDE [Concomitant]
     Route: 065
  7. VELCADE [Concomitant]
     Indication: MULTIPLE MYELOMA
     Route: 065

REACTIONS (8)
  - OESOPHAGEAL STENOSIS [None]
  - DEHYDRATION [None]
  - EROSIVE DUODENITIS [None]
  - GASTRITIS [None]
  - UROSEPSIS [None]
  - ASTHENIA [None]
  - PNEUMONIA ASPIRATION [None]
  - OESOPHAGITIS [None]
